FAERS Safety Report 8350813-9 (Version None)
Quarter: 2012Q2

REPORT INFORMATION
  Report Type: 
  Country: None (occurrence: None)
  Receive Date: 20120510
  Receipt Date: 20120430
  Transmission Date: 20120825
  Serious: Yes (Death)
  Sender: FDA-Public Use
  Company Number: US-BRISTOL-MYERS SQUIBB COMPANY-16560039

PATIENT
  Age: 37 Year
  Sex: Male
  Weight: 73 kg

DRUGS (1)
  1. YERVOY [Suspect]
     Indication: MALIGNANT MELANOMA
     Dosage: 50MG LOT#918609 EXPIRATION DATE: 30JUN2014 200MG
     Dates: start: 20120404

REACTIONS (1)
  - DEATH [None]
